FAERS Safety Report 23305203 (Version 1)
Quarter: 2023Q4

REPORT INFORMATION
  Report Type: Spontaneous
  Country: US (occurrence: US)
  Receive Date: 20231218
  Receipt Date: 20231218
  Transmission Date: 20240110
  Serious: No
  Sender: FDA-Public Use
  Company Number: US-ABBVIE-5535301

PATIENT
  Age: 61 Year
  Sex: Female
  Weight: 75 kg

DRUGS (1)
  1. LASTACAFT [Suspect]
     Active Substance: ALCAFTADINE
     Indication: Pruritus
     Dosage: ONE DROP PER EYE?0.25% SOLUTION
     Route: 047
     Dates: start: 20231203

REACTIONS (4)
  - Ocular hyperaemia [Not Recovered/Not Resolved]
  - Eyelid margin crusting [Not Recovered/Not Resolved]
  - Inflammation [Not Recovered/Not Resolved]
  - Eye infection bacterial [Not Recovered/Not Resolved]

NARRATIVE: CASE EVENT DATE: 20231203
